FAERS Safety Report 13861136 (Version 1)
Quarter: 2017Q3

REPORT INFORMATION
  Report Type: Report from Study
  Country: US (occurrence: US)
  Receive Date: 20170811
  Receipt Date: 20170811
  Transmission Date: 20171127
  Serious: Yes (Hospitalization)
  Sender: FDA-Public Use
  Company Number: US-EXELIXIS-CABO-17009782

PATIENT
  Sex: Male

DRUGS (11)
  1. PROTONIX [Concomitant]
     Active Substance: PANTOPRAZOLE SODIUM
  2. OXYCODONE [Concomitant]
     Active Substance: OXYCODONE
  3. CABOMETYX [Suspect]
     Active Substance: CABOZANTINIB S-MALATE
     Indication: RENAL CANCER
     Dosage: 60 MG, QD
     Route: 048
     Dates: start: 20170708
  4. IRON [Concomitant]
     Active Substance: IRON
  5. CIPROFLOXACIN. [Concomitant]
     Active Substance: CIPROFLOXACIN
  6. FLUCONAZOLE. [Concomitant]
     Active Substance: FLUCONAZOLE
  7. TYLENOL [Concomitant]
     Active Substance: ACETAMINOPHEN
  8. AMOXICILLIN. [Concomitant]
     Active Substance: AMOXICILLIN
  9. TAMSULOSIN [Concomitant]
     Active Substance: TAMSULOSIN
  10. PROBIOTICS [Concomitant]
     Active Substance: PROBIOTICS NOS
  11. PANTOPRAZOLE [Concomitant]
     Active Substance: PANTOPRAZOLE

REACTIONS (4)
  - Pain [Unknown]
  - Constipation [Unknown]
  - Fungal infection [Unknown]
  - Gastrointestinal perforation [Unknown]
